FAERS Safety Report 17446852 (Version 3)
Quarter: 2020Q1

REPORT INFORMATION
  Report Type: Spontaneous
  Country: CN (occurrence: CN)
  Receive Date: 20200221
  Receipt Date: 20200309
  Transmission Date: 20200409
  Serious: Yes (Hospitalization, Other)
  Sender: FDA-Public Use
  Company Number: CN-SA-2020SA044241

PATIENT

DRUGS (3)
  1. DHA [Concomitant]
     Active Substance: DIETARY SUPPLEMENT
     Dosage: UNK
     Route: 064
     Dates: start: 201603, end: 201612
  2. CLEXANE [Suspect]
     Active Substance: ENOXAPARIN SODIUM
     Indication: TOCOLYSIS
     Dosage: 0.6 ML, QD
     Route: 064
     Dates: start: 201603, end: 201612
  3. CALCIUM [Concomitant]
     Active Substance: CALCIUM
     Indication: MINERAL SUPPLEMENTATION
     Dosage: UNK
     Route: 064
     Dates: start: 201603, end: 201612

REACTIONS (4)
  - Oligohydramnios [Unknown]
  - Premature baby [Unknown]
  - Pneumonia [Recovered/Resolved]
  - Foetal exposure during pregnancy [Unknown]

NARRATIVE: CASE EVENT DATE: 201612
